FAERS Safety Report 25771401 (Version 1)
Quarter: 2025Q3

REPORT INFORMATION
  Report Type: Spontaneous
  Country: US (occurrence: US)
  Receive Date: 20250908
  Receipt Date: 20250908
  Transmission Date: 20251021
  Serious: No
  Sender: DOMPE FARMACEUTICI
  Company Number: US-FARMAPROD-202504-1335

PATIENT
  Age: 72 Year
  Sex: Female

DRUGS (9)
  1. OXERVATE [Suspect]
     Active Substance: CENEGERMIN-BKBJ
     Indication: Neurotrophic keratopathy
     Route: 047
     Dates: start: 20250402, end: 20250418
  2. OXERVATE [Suspect]
     Active Substance: CENEGERMIN-BKBJ
     Indication: Hypoaesthesia eye
  3. REFRESH CELLUVISC [Concomitant]
     Active Substance: CARBOXYMETHYLCELLULOSE SODIUM
  4. ZINC [Concomitant]
     Active Substance: ZINC
  5. MULTIVITAMINS WITH FLUORIDE [ASCORBIC ACID;CALCIUM PANTOTHENATE;CYANOC [Concomitant]
  6. MENAQUINONE 7 [Concomitant]
     Active Substance: MENAQUINONE 7
  7. VITAMIN D3 [Concomitant]
     Active Substance: CHOLECALCIFEROL
  8. ATENOLOL [Concomitant]
     Active Substance: ATENOLOL
  9. TYLENOL [Concomitant]
     Active Substance: ACETAMINOPHEN
     Indication: Pain
     Route: 048
     Dates: start: 20250411, end: 20250420

REACTIONS (6)
  - Urticaria [Recovered/Resolved]
  - Hypersensitivity [Recovered/Resolved]
  - Neuralgia [Recovered/Resolved]
  - Product dose omission issue [Unknown]
  - Arthralgia [Unknown]
  - Spinal pain [Unknown]

NARRATIVE: CASE EVENT DATE: 20250411
